FAERS Safety Report 9795998 (Version 1)
Quarter: 2014Q1

REPORT INFORMATION
  Report Type: Spontaneous
  Country: FR (occurrence: FR)
  Receive Date: 20140103
  Receipt Date: 20140103
  Transmission Date: 20141002
  Serious: Yes (Hospitalization, Other)
  Sender: FDA-Public Use
  Company Number: FR-JNJFOC-20140100917

PATIENT
  Age: 71 Year
  Sex: Male

DRUGS (18)
  1. XARELTO [Suspect]
     Indication: THROMBOSIS PROPHYLAXIS
     Route: 048
     Dates: start: 20131220
  2. XARELTO [Suspect]
     Indication: THROMBOSIS PROPHYLAXIS
     Route: 048
     Dates: start: 20131115
  3. XARELTO [Suspect]
     Indication: THROMBOSIS PROPHYLAXIS
     Route: 048
     Dates: start: 20131129, end: 20131220
  4. XARELTO [Suspect]
     Indication: KNEE ARTHROPLASTY
     Route: 048
     Dates: start: 20131115
  5. XARELTO [Suspect]
     Indication: KNEE ARTHROPLASTY
     Route: 048
     Dates: start: 20131129, end: 20131220
  6. XARELTO [Suspect]
     Indication: KNEE ARTHROPLASTY
     Route: 048
     Dates: start: 20131220
  7. CORDARONE [Concomitant]
     Route: 048
  8. DUPHALAC [Concomitant]
     Route: 048
  9. KARDEGIC [Concomitant]
     Route: 048
     Dates: end: 20131127
  10. KREDEX [Concomitant]
     Route: 048
  11. TAHOR [Concomitant]
     Route: 048
  12. OMACOR [Concomitant]
     Route: 048
  13. TRIATEC [Concomitant]
     Route: 048
  14. LASILIX [Concomitant]
     Route: 048
  15. INSPRA [Concomitant]
     Route: 048
  16. TOPALGIC LP [Concomitant]
     Route: 048
  17. TARDYFERON [Concomitant]
     Route: 048
  18. SPECIAFOLDINE [Concomitant]
     Route: 048

REACTIONS (2)
  - Venous thrombosis [Not Recovered/Not Resolved]
  - Drug ineffective [Not Recovered/Not Resolved]
